FAERS Safety Report 9711447 (Version 2)
Quarter: 2014Q2

REPORT INFORMATION
  Report Type: Spontaneous
  Country: US (occurrence: US)
  Receive Date: 20131126
  Receipt Date: 20140510
  Transmission Date: 20141212
  Serious: No
  Sender: FDA-Public Use
  Company Number: US-BRISTOL-MYERS SQUIBB COMPANY-19414697

PATIENT
  Age: 43 Year
  Sex: Female
  Weight: 127.89 kg

DRUGS (2)
  1. BYDUREON [Suspect]
     Indication: TYPE 2 DIABETES MELLITUS
     Dosage: UNTIL 17-SEP-2013
     Route: 058
     Dates: start: 20130907
  2. BYETTA [Suspect]
     Indication: TYPE 2 DIABETES MELLITUS

REACTIONS (2)
  - Drug ineffective [Not Recovered/Not Resolved]
  - Headache [Unknown]
